FAERS Safety Report 4970983-X (Version None)
Quarter: 2006Q2

REPORT INFORMATION
  Report Type: 
  Country: None (occurrence: None)
  Receive Date: 20060411
  Receipt Date: 20060411
  Transmission Date: 20061013
  Serious: No
  Sender: FDA-Public Use
  Company Number: None

PATIENT
  Sex: Female
  Weight: 72.5755 kg

DRUGS (1)
  1. LORATADINE [Suspect]
     Indication: RHINITIS ALLERGIC
     Dosage: 10 MG ONE PO QD
     Route: 048
     Dates: start: 20060328, end: 20060407

REACTIONS (3)
  - BURNING SENSATION [None]
  - EYE PRURITUS [None]
  - PRURITUS [None]
